FAERS Safety Report 14057253 (Version 1)
Quarter: 2017Q4

REPORT INFORMATION
  Report Type: Spontaneous
  Country: US (occurrence: US)
  Receive Date: 20171006
  Receipt Date: 20171006
  Transmission Date: 20180321
  Serious: Yes (Hospitalization)
  Sender: FDA-Public Use
  Company Number: US-KADMON PHARMACEUTICALS, LLC-KAD201709-001072

PATIENT
  Age: 54 Year
  Sex: Female

DRUGS (4)
  1. BOCEPREVIR [Suspect]
     Active Substance: BOCEPREVIR
  2. PEGINTERFERON ALFA-2A. [Suspect]
     Active Substance: PEGINTERFERON ALFA-2A
  3. RIBASPHERE [Suspect]
     Active Substance: RIBAVIRIN
  4. RIBASPHERE [Suspect]
     Active Substance: RIBAVIRIN

REACTIONS (14)
  - White blood cell count decreased [Unknown]
  - Immunodeficiency [Unknown]
  - Blood potassium decreased [Unknown]
  - Headache [Unknown]
  - Swelling face [Unknown]
  - Hypertension [Unknown]
  - Weight increased [Unknown]
  - Anaemia [Unknown]
  - Candida infection [Unknown]
  - Malaise [Unknown]
  - Nausea [Unknown]
  - Peripheral swelling [Unknown]
  - Vertigo [Unknown]
  - Abdominal pain upper [Unknown]

NARRATIVE: CASE EVENT DATE: 20130124
